FAERS Safety Report 4717037-5 (Version None)
Quarter: 2005Q3

REPORT INFORMATION
  Report Type: 
  Country: None (occurrence: None)
  Receive Date: 20050712
  Receipt Date: 20040913
  Transmission Date: 20060218
  Serious: Yes (Disabling)
  Sender: FDA-Public Use
  Company Number: PHEH2004US09923

PATIENT
  Age: 38 Year
  Sex: Female

DRUGS (1)
  1. GLEEVEC [Suspect]
     Indication: THYMOMA
     Dosage: 400 MG, QD, ORAL
     Route: 048
     Dates: start: 20040207, end: 20040409

REACTIONS (4)
  - BONE PAIN [None]
  - MUSCLE SPASMS [None]
  - OEDEMA [None]
  - PAIN IN EXTREMITY [None]
